FAERS Safety Report 5946685-X (Version None)
Quarter: 2008Q4

REPORT INFORMATION
  Report Type: 
  Country: None (occurrence: None)
  Receive Date: 20081110
  Receipt Date: 20080820
  Transmission Date: 20090506
  Serious: No
  Sender: FDA-Public Use
  Company Number: A0743559A

PATIENT
  Age: 62 Year
  Sex: Male

DRUGS (3)
  1. ALTABAX [Suspect]
     Route: 045
     Dates: start: 20080819
  2. LEVAQUIN [Concomitant]
  3. COUMADIN [Concomitant]

REACTIONS (1)
  - APPLICATION SITE IRRITATION [None]
